FAERS Safety Report 6625688-6 (Version None)
Quarter: 2010Q1

REPORT INFORMATION
  Report Type: 
  Country: None (occurrence: None)
  Receive Date: 20100310
  Receipt Date: 20100305
  Transmission Date: 20100710
  Serious: Yes (Death, Hospitalization)
  Sender: FDA-Public Use
  Company Number: FR-CELGENEUS-056-C5013-09100613

PATIENT
  Sex: Male
  Weight: 68 kg

DRUGS (16)
  1. CC-5013 [Suspect]
     Indication: NON-HODGKIN'S LYMPHOMA
     Route: 048
     Dates: start: 20090202
  2. CC-5013 [Suspect]
     Route: 048
     Dates: start: 20090923, end: 20091005
  3. MOPRAL [Concomitant]
     Route: 048
  4. GAVISCON [Concomitant]
     Route: 048
  5. CORTANCYL [Concomitant]
     Route: 065
     Dates: start: 20071201
  6. PRIMPERAN INJ [Concomitant]
     Indication: NAUSEA
     Route: 065
  7. PRIMPERAN INJ [Concomitant]
     Indication: VOMITING
  8. LASILIX [Concomitant]
     Indication: HYPERTENSION
     Route: 048
  9. APROVEL [Concomitant]
     Indication: HYPERTENSION
     Route: 048
  10. HUMALOG [Concomitant]
     Route: 058
  11. LANTUS [Concomitant]
     Route: 058
  12. NEXIUM [Concomitant]
     Route: 048
  13. BRICANYL [Concomitant]
     Indication: ASTHMA
     Route: 055
  14. OROKEN [Concomitant]
     Route: 065
  15. TOPLEXIL [Concomitant]
     Indication: COUGH
     Route: 048
  16. EFFERALGAN [Concomitant]
     Indication: PAIN
     Route: 048

REACTIONS (8)
  - LUNG INFECTION [None]
  - MALNUTRITION [None]
  - NEUTROPENIA [None]
  - NOSOCOMIAL INFECTION [None]
  - PNEUMOCOCCAL SEPSIS [None]
  - PNEUMONIA [None]
  - SEPTIC SHOCK [None]
  - WEIGHT DECREASED [None]
